FAERS Safety Report 7166729-X (Version None)
Quarter: 2010Q4

REPORT INFORMATION
  Report Type: 
  Country: None (occurrence: None)
  Receive Date: 20101213
  Receipt Date: 20101213
  Transmission Date: 20110411
  Serious: Yes (Hospitalization)
  Sender: FDA-Public Use
  Company Number: None

PATIENT
  Age: 53 Year
  Sex: Female
  Weight: 77.5651 kg

DRUGS (1)
  1. ROLAIDS CHEWABLE TAB [Suspect]
     Indication: DYSPEPSIA
     Dosage: 2 CHEWS EVERY 8 HOURS PO
     Route: 048
     Dates: start: 20101116, end: 20101121

REACTIONS (4)
  - ABDOMINAL DISCOMFORT [None]
  - ABDOMINAL PAIN UPPER [None]
  - DIARRHOEA [None]
  - NAUSEA [None]
